FAERS Safety Report 4464106-3 (Version None)
Quarter: 2004Q3

REPORT INFORMATION
  Report Type: 
  Country: None (occurrence: None)
  Receive Date: 20040929
  Receipt Date: 20040929
  Transmission Date: 20050211
  Serious: Yes (Hospitalization, Other)
  Sender: FDA-Public Use
  Company Number: None

PATIENT
  Age: 39 Year
  Sex: Male

DRUGS (2)
  1. VIOXX [Suspect]
     Indication: ARTHRALGIA
     Dosage: 25 MG QD
     Dates: start: 20040830
  2. SKELAXIN [Suspect]
     Indication: MUSCLE SPASMS
     Dosage: 400 MG TID
     Dates: start: 20040830

REACTIONS (3)
  - PRURITUS [None]
  - RASH [None]
  - SWELLING [None]
